FAERS Safety Report 10008046 (Version 3)
Quarter: 2014Q2

REPORT INFORMATION
  Report Type: Spontaneous
  Country: JP (occurrence: JP)
  Receive Date: 20140313
  Receipt Date: 20140401
  Transmission Date: 20141212
  Serious: Yes (Hospitalization)
  Sender: FDA-Public Use
  Company Number: JP-PFIZER INC-2014073767

PATIENT
  Age: 63 Year
  Sex: Male
  Weight: 62 kg

DRUGS (6)
  1. CELECOX [Suspect]
     Indication: PROCEDURAL PAIN
     Dosage: 200 MG, 2X/DAY (STRENGTH 200MG)
     Route: 048
     Dates: start: 20140228, end: 20140302
  2. ROCEPHIN [Suspect]
     Indication: APPENDICITIS
     Dosage: 1 G, 2X/DAY
     Route: 042
     Dates: start: 20140212, end: 20140220
  3. AMLODIN [Concomitant]
     Indication: HYPERTENSION
     Dosage: 5 MG, DAILY
     Route: 048
     Dates: start: 20140212
  4. TANATRIL [Concomitant]
     Indication: HYPERTENSION
     Dosage: UNK
     Dates: start: 20140212
  5. COSPANON [Concomitant]
     Indication: CHOLELITHIASIS
     Dosage: 240 MG, DAILY
     Dates: start: 20140224
  6. URSO [Concomitant]
     Indication: CHOLELITHIASIS
     Dosage: 300 MG, DAILY
     Dates: start: 20140224

REACTIONS (1)
  - Enterocolitis bacterial [Recovered/Resolved]
